FAERS Safety Report 8601221-4 (Version None)
Quarter: 2012Q3

REPORT INFORMATION
  Report Type: 
  Country: None (occurrence: None)
  Receive Date: 20120817
  Receipt Date: 20120813
  Transmission Date: 20120928
  Serious: Yes (Hospitalization, Other)
  Sender: FDA-Public Use
  Company Number: PHEH2009US10610

PATIENT
  Sex: Female
  Weight: 163 kg

DRUGS (6)
  1. ASPIRIN [Concomitant]
     Dosage: 81 MG, QD
     Route: 048
     Dates: start: 20120628
  2. LIPITOR [Concomitant]
     Dosage: 20 MG, UNK
  3. LISINOPRIL [Concomitant]
     Dosage: 5 MG, QD
     Route: 048
     Dates: start: 20120313
  4. ASPIRIN [Concomitant]
     Dosage: UNK UKN, UNK
  5. METOPROLOL TARTRATE [Suspect]
     Indication: VENTRICULAR EXTRASYSTOLES
     Dosage: 0.5 DF (100 MG), TID
     Route: 048
  6. FNG [Concomitant]
     Dosage: 0.4 MG, PRN
     Route: 060
     Dates: start: 20120628

REACTIONS (6)
  - VENTRICULAR EXTRASYSTOLES [None]
  - SUPRAVENTRICULAR EXTRASYSTOLES [None]
  - CARDIAC FLUTTER [None]
  - PALPITATIONS [None]
  - WRONG TECHNIQUE IN DRUG USAGE PROCESS [None]
  - HEART RATE INCREASED [None]
